FAERS Safety Report 8584144-9 (Version None)
Quarter: 2012Q3

REPORT INFORMATION
  Report Type: 
  Country: None (occurrence: None)
  Receive Date: 20120810
  Receipt Date: 20120802
  Transmission Date: 20120928
  Serious: No
  Sender: FDA-Public Use
  Company Number: US-009507513-1208USA001583

PATIENT

DRUGS (2)
  1. ZETIA [Concomitant]
  2. ASMANEX TWISTHALER [Suspect]
     Indication: ASTHMA
     Dosage: 1 DF, QPM
     Dates: start: 20070101

REACTIONS (3)
  - WHEEZING [None]
  - DRUG DOSE OMISSION [None]
  - PRODUCT QUALITY ISSUE [None]
